FAERS Safety Report 8905493 (Version 2)
Quarter: 2013Q1

REPORT INFORMATION
  Report Type: Report from Study
  Country: SE (occurrence: SE)
  Receive Date: 20121109
  Receipt Date: 20130304
  Transmission Date: 20140127
  Serious: Yes (Hospitalization)
  Sender: FDA-Public Use
  Company Number: SE-PFIZER INC-2012276414

PATIENT
  Age: 67 Year
  Sex: Female
  Weight: 75 kg

DRUGS (4)
  1. GENOTROPIN [Suspect]
     Dosage: 0.2 MG, 1X/DAY,7 INJECTIONS/WEEK
     Route: 058
     Dates: start: 20011215
  2. LANZO [Concomitant]
     Indication: GASTRITIS
     Dosage: UNK
     Dates: start: 20001023
  3. LANZO [Concomitant]
     Indication: DUODENITIS
  4. TRIOBE [Concomitant]
     Indication: VITAMIN B COMPLEX DEFICIENCY
     Dosage: UNK
     Dates: start: 20030606

REACTIONS (2)
  - Vomiting [Unknown]
  - Diarrhoea [Unknown]
